FAERS Safety Report 4959159-X (Version None)
Quarter: 2006Q1

REPORT INFORMATION
  Report Type: 
  Country: None (occurrence: None)
  Receive Date: 20060331
  Receipt Date: 20060323
  Transmission Date: 20060701
  Serious: Yes (Hospitalization)
  Sender: FDA-Public Use
  Company Number: 2006PK00590

PATIENT
  Age: 65 Year
  Sex: Female

DRUGS (18)
  1. NEXIUM [Suspect]
     Indication: DYSPEPSIA
     Route: 048
     Dates: start: 20051202
  2. QUININE SULFATE [Suspect]
     Indication: MUSCLE SPASMS
     Route: 048
     Dates: start: 20051201, end: 20051228
  3. QUININE SULFATE [Suspect]
     Route: 048
     Dates: start: 20051201, end: 20051228
  4. TORSEMIDE [Suspect]
     Indication: HYPERTENSIVE HEART DISEASE
     Route: 048
     Dates: start: 20050301
  5. LASIX [Suspect]
     Indication: CARDIAC FAILURE CONGESTIVE
     Route: 042
     Dates: start: 20051208
  6. ASPIRIN [Suspect]
     Indication: CARDIAC FAILURE
     Route: 048
     Dates: start: 20040101
  7. FERRUM HAUSMANN [Suspect]
     Indication: RED BLOOD CELL ABNORMALITY
     Route: 048
     Dates: start: 20050301, end: 20051228
  8. ALDACTONE [Concomitant]
  9. FRAXIPARINE [Concomitant]
  10. PLAVIX [Concomitant]
  11. LESCOL [Concomitant]
  12. COZAAR [Concomitant]
  13. DAFALGAN [Concomitant]
  14. NEURONTIN [Concomitant]
  15. SIFROL [Concomitant]
  16. STILNOX [Concomitant]
  17. XANAX [Concomitant]
  18. MOCLO A [Concomitant]

REACTIONS (2)
  - HAEMOLYTIC ANAEMIA [None]
  - SYNCOPE [None]
